FAERS Safety Report 6440349-4 (Version None)
Quarter: 2009Q4

REPORT INFORMATION
  Report Type: 
  Country: None (occurrence: None)
  Receive Date: 20091113
  Receipt Date: 20091102
  Transmission Date: 20100525
  Serious: Yes (Disabling)
  Sender: FDA-Public Use
  Company Number: PHHY2009IT48053

PATIENT
  Sex: Female

DRUGS (4)
  1. ZOMETA [Suspect]
     Indication: METASTASES TO BONE
     Dosage: 4 MG, QMO
     Route: 042
     Dates: start: 20070831, end: 20090209
  2. VINORELBINE [Concomitant]
  3. CAPECITABINE [Concomitant]
  4. TAXOTERE [Concomitant]

REACTIONS (1)
  - OSTEONECROSIS [None]
